FAERS Safety Report 10249943 (Version 1)
Quarter: 2014Q2

REPORT INFORMATION
  Report Type: Spontaneous
  Country: AR (occurrence: AR)
  Receive Date: 20140620
  Receipt Date: 20140620
  Transmission Date: 20141212
  Serious: Yes (Other)
  Sender: FDA-Public Use
  Company Number: AR-WATSON-2014-12653

PATIENT
  Age: 39 Year
  Sex: Male

DRUGS (8)
  1. ERGOTAMINE [Suspect]
     Indication: HEADACHE
     Dosage: 1 MG, SINGLE
     Route: 048
  2. ERGOTAMINE [Interacting]
     Indication: NAUSEA
  3. ERGOTAMINE [Interacting]
     Indication: VOMITING
  4. PROPRANOLOL (UNKNOWN) [Interacting]
     Indication: GASTROOESOPHAGEAL VARICEAL HAEMORRHAGE PROPHYLAXIS
     Dosage: 120 MG, DAILY
     Route: 065
  5. RITONAVIR [Interacting]
     Indication: HIV INFECTION
     Dosage: UNK
     Route: 065
  6. LAMIVUDINE [Concomitant]
     Indication: HIV INFECTION
     Dosage: UNK
     Route: 065
  7. LOPINAVIR [Concomitant]
     Indication: HIV INFECTION
     Dosage: UNK
     Route: 065
  8. DIDANOSINE [Concomitant]
     Indication: HIV INFECTION
     Dosage: UNK
     Route: 065

REACTIONS (4)
  - Ergot poisoning [Recovered/Resolved]
  - Splenic infarction [Unknown]
  - Blood pressure immeasurable [Recovered/Resolved]
  - Drug interaction [Unknown]
